FAERS Safety Report 25456228 (Version 1)
Quarter: 2025Q2

REPORT INFORMATION
  Report Type: Report from Study
  Country: CO (occurrence: CO)
  Receive Date: 20250619
  Receipt Date: 20250619
  Transmission Date: 20250717
  Serious: Yes (Death)
  Sender: PUMA
  Company Number: CO-OEPI8P-1575

PATIENT

DRUGS (4)
  1. NERLYNX [Suspect]
     Active Substance: NERATINIB
     Indication: Breast cancer
     Dosage: 200 MG, DAILY
     Route: 048
     Dates: start: 20241106
  2. CAPECITABINE [Concomitant]
     Active Substance: CAPECITABINE
     Indication: Breast cancer
     Dosage: 2000 MG, DAILY (1000 MG EVERY 12 H)
     Route: 048
     Dates: start: 20241106
  3. ONDANSETRON [Concomitant]
     Active Substance: ONDANSETRON
     Indication: Vomiting
     Dosage: 24 MG, DAILY (8 MG EVERY 8 H)
     Route: 048
     Dates: start: 20250410
  4. LOPERAMIDE [Concomitant]
     Active Substance: LOPERAMIDE
     Indication: Diarrhoea
     Dosage: 6 MG, DAILY (2 MG EVERY 8 H)
     Route: 048
     Dates: start: 20250410

REACTIONS (1)
  - Death [Fatal]

NARRATIVE: CASE EVENT DATE: 20250605
